FAERS Safety Report 7734496-4 (Version None)
Quarter: 2011Q3

REPORT INFORMATION
  Report Type: 
  Country: None (occurrence: None)
  Receive Date: 20110907
  Receipt Date: 20110826
  Transmission Date: 20111222
  Serious: Yes (Other)
  Sender: FDA-Public Use
  Company Number: US-GLAXOSMITHKLINE-A0897001A

PATIENT
  Age: 62 Year
  Sex: Female
  Weight: 87.3 kg

DRUGS (6)
  1. HYDROCHLOROTHIAZIDE [Concomitant]
  2. XANAX [Concomitant]
  3. LOTREL [Concomitant]
  4. AVANDARYL [Suspect]
     Indication: TYPE 2 DIABETES MELLITUS
     Route: 048
     Dates: start: 20060203, end: 20070206
  5. SYNTHROID [Concomitant]
  6. VYTORIN [Concomitant]

REACTIONS (5)
  - MYOCARDIAL ISCHAEMIA [None]
  - CORONARY ARTERY DISEASE [None]
  - OEDEMA [None]
  - HYPERTENSION [None]
  - CARDIOVASCULAR DISORDER [None]
